FAERS Safety Report 19643903 (Version 2)
Quarter: 2021Q4

REPORT INFORMATION
  Report Type: Report from Study
  Country: US (occurrence: US)
  Receive Date: 20210731
  Receipt Date: 20211230
  Transmission Date: 20220303
  Serious: No
  Sender: FDA-Public Use
  Company Number: US-NOVARTISTESTPH-NVSC2021US167352

PATIENT
  Sex: Male
  Weight: 129.25 kg

DRUGS (5)
  1. TREPROSTINIL [Suspect]
     Active Substance: TREPROSTINIL
     Indication: Pulmonary arterial hypertension
     Dosage: 24 NG/KG/MIN, CONT
     Route: 058
     Dates: start: 20210706
  2. TREPROSTINIL [Suspect]
     Active Substance: TREPROSTINIL
     Dosage: 60NG/KG/MIN,CONT
     Route: 058
     Dates: start: 20210706
  3. REMODULIN [Concomitant]
     Active Substance: TREPROSTINIL
     Indication: Product used for unknown indication
     Route: 065
  4. WARFARIN [Concomitant]
     Active Substance: WARFARIN
     Indication: Product used for unknown indication
     Route: 065
  5. SILDENAFIL CITRATE [Concomitant]
     Active Substance: SILDENAFIL CITRATE
     Indication: Product used for unknown indication
     Route: 065

REACTIONS (8)
  - Administration site pain [Unknown]
  - Contusion [Unknown]
  - Injection site haemorrhage [Unknown]
  - Headache [Unknown]
  - Skin discolouration [Unknown]
  - Peripheral swelling [Unknown]
  - Oedema [Unknown]
  - Pain in extremity [Unknown]
